FAERS Safety Report 4419883-4 (Version None)
Quarter: 2004Q3

REPORT INFORMATION
  Report Type: 
  Country: None (occurrence: None)
  Receive Date: 20040804
  Receipt Date: 20040709
  Transmission Date: 20050211
  Serious: Yes (Hospitalization)
  Sender: FDA-Public Use
  Company Number: JP_040703762

PATIENT
  Age: 43 Year
  Sex: Female

DRUGS (4)
  1. ONCOVIN [Suspect]
     Indication: CERVIX CARCINOMA
     Dosage: 1 MG OTHER
     Route: 050
     Dates: start: 20040707, end: 20040707
  2. PEPLEO (PEPLOMYCIN) [Concomitant]
  3. RANDA (CISPLATIN PHARMACIA) [Concomitant]
  4. MITOMYCIN-C BULK POWDER [Concomitant]

REACTIONS (3)
  - ALANINE AMINOTRANSFERASE INCREASED [None]
  - ASPARTATE AMINOTRANSFERASE INCREASED [None]
  - LIVER DISORDER [None]
